FAERS Safety Report 9052703 (Version 6)
Quarter: 2013Q2

REPORT INFORMATION
  Report Type: Report from Study
  Country: CA (occurrence: CA)
  Receive Date: 20130207
  Receipt Date: 20130518
  Transmission Date: 20140414
  Serious: Yes (Death, Hospitalization, Other)
  Sender: FDA-Public Use
  Company Number: CA-ROCHE-1057129

PATIENT
  Age: 41 Year
  Sex: Male
  Weight: 80.7 kg

DRUGS (7)
  1. ZELBORAF [Suspect]
     Indication: METASTATIC MALIGNANT MELANOMA
     Route: 048
     Dates: start: 20120319
  2. ZELBORAF [Suspect]
     Route: 048
     Dates: start: 20120416
  3. ZELBORAF [Suspect]
     Route: 048
     Dates: start: 201205
  4. ZELBORAF [Suspect]
     Route: 048
     Dates: start: 20120924, end: 2013
  5. DILANTIN [Suspect]
     Indication: PRODUCT USED FOR UNKNOWN INDICATION
     Route: 048
     Dates: start: 2013
  6. CLINDAMYCIN [Concomitant]
     Indication: NASOPHARYNGITIS
     Route: 065
     Dates: end: 20120319
  7. TYLENOL #1 (CANADA) [Concomitant]
     Route: 065

REACTIONS (10)
  - Disease progression [Fatal]
  - Metastases to central nervous system [Unknown]
  - Convulsion [Unknown]
  - Myalgia [Not Recovered/Not Resolved]
  - Arthralgia [Not Recovered/Not Resolved]
  - Photosensitivity reaction [Unknown]
  - Liver function test abnormal [Unknown]
  - Sunburn [Recovered/Resolved]
  - Osteomyelitis [Recovered/Resolved]
  - Nausea [Recovering/Resolving]
